FAERS Safety Report 15390161 (Version 1)
Quarter: 2018Q3

REPORT INFORMATION
  Report Type: Spontaneous
  Country: US (occurrence: US)
  Receive Date: 20180917
  Receipt Date: 20180917
  Transmission Date: 20181010
  Serious: No
  Sender: FDA-Public Use
  Company Number: US-BAYER-2018-170308

PATIENT
  Age: 62 Year
  Sex: Male
  Weight: 104.31 kg

DRUGS (1)
  1. MIRALAX [Suspect]
     Active Substance: POLYETHYLENE GLYCOL 3350
     Dosage: 1 DF, UNK

REACTIONS (6)
  - Malaise [Unknown]
  - Product quality issue [None]
  - Vomiting [Unknown]
  - Dysgeusia [None]
  - Product use issue [Unknown]
  - Poor quality drug administered [None]
